FAERS Safety Report 21792954 (Version 1)
Quarter: 2022Q4

REPORT INFORMATION
  Report Type: Spontaneous
  Country: SA (occurrence: SA)
  Receive Date: 20221229
  Receipt Date: 20221229
  Transmission Date: 20230113
  Serious: Yes (Other)
  Sender: FDA-Public Use
  Company Number: SA-ALKEM LABORATORIES LIMITED-DE-ALKEM-2022-10689

PATIENT
  Age: 20 Month
  Sex: Female

DRUGS (1)
  1. SIROLIMUS [Suspect]
     Active Substance: SIROLIMUS
     Indication: Lymphatic disorder
     Dosage: 0.8 MILLIGRAM/SQ. METER, BID (TWICE DAILY)
     Route: 065

REACTIONS (1)
  - Neutropenia [Unknown]
